FAERS Safety Report 25139331 (Version 1)
Quarter: 2025Q1

REPORT INFORMATION
  Report Type: Spontaneous
  Country: PH (occurrence: PH)
  Receive Date: 20250331
  Receipt Date: 20250331
  Transmission Date: 20250409
  Serious: Yes (Hospitalization)
  Sender: SANOFI AVENTIS
  Company Number: PH-DialogSolutions-SAAVPROD-PI750299-C1

PATIENT
  Age: 54 Year
  Sex: Male

DRUGS (3)
  1. CLOPIDOGREL BISULFATE [Suspect]
     Active Substance: CLOPIDOGREL BISULFATE
     Dosage: 75 MG, QD
  2. ENOXAPARIN SODIUM [Suspect]
     Active Substance: ENOXAPARIN SODIUM
     Dosage: 0.4 ML, QD
     Route: 058
  3. ASPIRIN [Suspect]
     Active Substance: ASPIRIN
     Dosage: 80 MG, QD

REACTIONS (2)
  - Mental status changes [Unknown]
  - Haemorrhagic disorder [Unknown]
